FAERS Safety Report 8234573-8 (Version None)
Quarter: 2012Q1

REPORT INFORMATION
  Report Type: 
  Country: None (occurrence: None)
  Receive Date: 20120326
  Receipt Date: 20120220
  Transmission Date: 20120608
  Serious: Yes (Other)
  Sender: FDA-Public Use
  Company Number: US-ROCHE-1051936

PATIENT
  Sex: Female
  Weight: 68.1 kg

DRUGS (8)
  1. XELODA [Suspect]
     Indication: COLORECTAL CANCER METASTATIC
     Dosage: 1500 MG IN THE MORNING AND 1000 MG IN EVENING
     Dates: start: 20120214
  2. XELODA [Suspect]
     Dates: start: 20120214
  3. NEXIUM [Concomitant]
     Dosage: AS NECESSARY
     Route: 048
  4. TURMERIC [Concomitant]
  5. AVASTIN [Concomitant]
     Indication: COLORECTAL CANCER METASTATIC
     Route: 042
  6. MAGNESIUM [Concomitant]
  7. CALCIUM CARBONATE [Concomitant]
  8. IMITREX [Concomitant]
     Indication: MIGRAINE
     Dosage: AS NECESSARY
     Route: 048

REACTIONS (3)
  - ABDOMINAL DISCOMFORT [None]
  - DYSPEPSIA [None]
  - ABDOMINAL DISTENSION [None]
